FAERS Safety Report 7074880-8 (Version None)
Quarter: 2010Q4

REPORT INFORMATION
  Report Type: 
  Country: None (occurrence: None)
  Receive Date: 20101029
  Receipt Date: 20101026
  Transmission Date: 20110411
  Serious: Yes (Death, Other)
  Sender: FDA-Public Use
  Company Number: PHHY2010US70147

PATIENT
  Sex: Male
  Weight: 78 kg

DRUGS (6)
  1. EXJADE [Suspect]
     Indication: MYELODYSPLASTIC SYNDROME
     Dosage: 1500 MG, DAILY
     Route: 048
     Dates: start: 20080501
  2. VIDAZA [Concomitant]
     Dosage: 250 MG, X5D
     Route: 042
  3. DIAZEM [Concomitant]
     Dosage: X5 D
     Route: 042
  4. EPOGEN [Concomitant]
     Dosage: UNK
  5. PLATELETS [Concomitant]
  6. HYDROCHLOROTHIAZIDE [Concomitant]

REACTIONS (4)
  - ABDOMINAL DISCOMFORT [None]
  - DIARRHOEA [None]
  - MALIGNANT NEOPLASM PROGRESSION [None]
  - NEUROPATHY PERIPHERAL [None]
